FAERS Safety Report 5466719-9 (Version None)
Quarter: 2007Q3

REPORT INFORMATION
  Report Type: 
  Country: None (occurrence: None)
  Receive Date: 20070925
  Receipt Date: 20070919
  Transmission Date: 20080115
  Serious: Yes (Life-Threatening, Hospitalization)
  Sender: FDA-Public Use
  Company Number: PL-JNJFOC-20070803150

PATIENT
  Age: 19 Year
  Sex: Female

DRUGS (5)
  1. PARACETAMOL [Suspect]
  2. PARACETAMOL [Suspect]
     Indication: NASOPHARYNGITIS
     Dosage: DOSE UNKNOWN
  3. GRIPEX [Suspect]
     Indication: NASOPHARYNGITIS
  4. ASCORBIC ACID [Suspect]
     Indication: NASOPHARYNGITIS
  5. RUTINOSCORBIN [Suspect]
     Indication: NASOPHARYNGITIS

REACTIONS (1)
  - TOXIC EPIDERMAL NECROLYSIS [None]
